FAERS Safety Report 6380225-9 (Version None)
Quarter: 2009Q3

REPORT INFORMATION
  Report Type: 
  Country: None (occurrence: None)
  Receive Date: 20090923
  Receipt Date: 20090911
  Transmission Date: 20100115
  Serious: Yes (Hospitalization)
  Sender: FDA-Public Use
  Company Number: WAES 0909USA01068

PATIENT
  Age: 75 Year
  Sex: Female

DRUGS (3)
  1. FOSAMAX [Suspect]
     Indication: OSTEOPOROSIS
     Dosage: 35 MG/WKY, PO
     Route: 048
     Dates: start: 20090518, end: 20090831
  2. CALCIUM CARBONATE [Suspect]
     Indication: OSTEOPOROSIS
     Dosage: 2 DOSE/DAILY, PO
     Route: 048
     Dates: start: 20090415, end: 20090906
  3. DIOVAN [Suspect]
     Indication: HYPERTENSION
     Dosage: 40 MG/DAILY, PO
     Route: 048
     Dates: start: 20080219, end: 20090907

REACTIONS (4)
  - ENTERITIS INFECTIOUS [None]
  - ENTEROCOLITIS [None]
  - HAEMATOCHEZIA [None]
  - TENDERNESS [None]
